FAERS Safety Report 24920661 (Version 1)
Quarter: 2025Q1

REPORT INFORMATION
  Report Type: Report from Study
  Country: US (occurrence: US)
  Receive Date: 20250204
  Receipt Date: 20250204
  Transmission Date: 20250409
  Serious: No
  Sender: EXELIXIS
  Company Number: US-EXELIXIS-CABO-24074451

PATIENT
  Sex: Male

DRUGS (2)
  1. CABOMETYX [Suspect]
     Active Substance: CABOZANTINIB S-MALATE
     Indication: Renal cancer
  2. FOTIVDA [Concomitant]
     Active Substance: TIVOZANIB HYDROCHLORIDE

REACTIONS (7)
  - Oropharyngeal pain [Unknown]
  - Dysphagia [Unknown]
  - Dry throat [Unknown]
  - Coccydynia [Unknown]
  - Stomatitis [Unknown]
  - Dry mouth [Unknown]
  - Hospice care [Unknown]
